FAERS Safety Report 7450116-0 (Version None)
Quarter: 2011Q2

REPORT INFORMATION
  Report Type: 
  Country: None (occurrence: None)
  Receive Date: 20110502
  Receipt Date: 20110413
  Transmission Date: 20111010
  Serious: No
  Sender: FDA-Public Use
  Company Number: US-B.I. PHARMACEUTICALS,INC./RIDGEFIELD-2011-BP-10899BP

PATIENT
  Sex: Female

DRUGS (2)
  1. SPIRIVA [Suspect]
     Indication: CHRONIC OBSTRUCTIVE PULMONARY DISEASE
     Dosage: 18 MCG
     Route: 055
     Dates: start: 20100901
  2. METHIMAZOLE [Concomitant]
     Indication: HYPERTHYROIDISM
     Dosage: 2.5 MG
     Route: 048
     Dates: start: 20100901

REACTIONS (2)
  - FATIGUE [None]
  - HYPERSOMNIA [None]
